FAERS Safety Report 20708614 (Version 2)
Quarter: 2022Q2

REPORT INFORMATION
  Report Type: Other
  Country: US (occurrence: None)
  Receive Date: 20220414
  Receipt Date: 20220416
  Transmission Date: 20220720
  Serious: No
  Sender: FDA-Public Use
  Company Number: US-ROCHE-3069914

PATIENT
  Sex: Female

DRUGS (1)
  1. OCREVUS [Suspect]
     Active Substance: OCRELIZUMAB
     Indication: Relapsing-remitting multiple sclerosis
     Dosage: (PRESCRIBED AS INFUSE 300 MG AT DAY 0 AND 15, THEN 600 MG EVERY 6 MONTH)?DATE OF TREATMENT: 13/MAY/2
     Route: 065

REACTIONS (1)
  - Hepatitis B virus test positive [Not Recovered/Not Resolved]
